FAERS Safety Report 8770626 (Version 2)
Quarter: 2012Q4

REPORT INFORMATION
  Report Type: Report from Study
  Country: DE (occurrence: DE)
  Receive Date: 20120906
  Receipt Date: 20121128
  Transmission Date: 20130627
  Serious: Yes (Hospitalization, Disabling)
  Sender: FDA-Public Use
  Company Number: DE-ROCHE-1113285

PATIENT
  Age: 60 Year
  Sex: Female
  Weight: 71 kg

DRUGS (5)
  1. METHOXY POLYETHYLENE GLYCOL-EPOETIN BETA [Suspect]
     Indication: NEPHROGENIC ANAEMIA
     Dosage: Date of last dose prior to sae: 21/Nov/2011 and 16/feb/2012
     Route: 042
     Dates: start: 20110429
  2. RAMIPRIL [Concomitant]
     Route: 065
     Dates: start: 20111231
  3. ASS [Concomitant]
     Route: 065
     Dates: start: 20070627
  4. NPH INSULIN [Concomitant]
     Route: 065
     Dates: start: 20050831
  5. BONDIOL [Concomitant]
     Route: 065
     Dates: start: 20110125

REACTIONS (2)
  - Pneumonia [Recovered/Resolved]
  - Musculoskeletal disorder [Recovered/Resolved with Sequelae]
